FAERS Safety Report 9821166 (Version 1)
Quarter: 2013Q4

REPORT INFORMATION
  Report Type: Spontaneous
  Country: US (occurrence: None)
  Receive Date: 20131028
  Receipt Date: 20131028
  Transmission Date: 20140711
  Serious: Yes (Other)
  Sender: FDA-Public Use
  Company Number: DAV-AE-ALP-13-09

PATIENT
  Sex: Female

DRUGS (5)
  1. ALPRAZOLAM [Suspect]
     Indication: PANIC ATTACK
     Route: 048
     Dates: start: 201303, end: 201304
  2. ALDACTONE [Suspect]
  3. (LEVOFLOXACIN) LEVAQUIN [Concomitant]
  4. (OXYMORPHONE HYDROCHLORIDE) OPANA 20MG [Concomitant]
  5. (OXYCODONE) [Concomitant]

REACTIONS (5)
  - Fatigue [None]
  - Convulsion [None]
  - Panic attack [None]
  - Drug ineffective [None]
  - Insomnia [None]
